FAERS Safety Report 24772346 (Version 1)
Quarter: 2024Q4

REPORT INFORMATION
  Report Type: Spontaneous
  Country: CN (occurrence: CN)
  Receive Date: 20241224
  Receipt Date: 20241224
  Transmission Date: 20250114
  Serious: Yes (Life-Threatening, Hospitalization, Other)
  Sender: PFIZER
  Company Number: CN-PFIZER INC-PV202400165833

PATIENT
  Age: 36 Year
  Sex: Male
  Weight: 45 kg

DRUGS (6)
  1. ZYVOX [Suspect]
     Active Substance: LINEZOLID
     Indication: Intracranial infection
     Dosage: 600 MG, 2X/DAY
     Route: 041
     Dates: start: 20241104, end: 20241111
  2. TEICOPLANIN [Suspect]
     Active Substance: TEICOPLANIN
     Indication: Intracranial infection
     Dosage: 400 MG, 2X/DAY
     Route: 041
     Dates: start: 20241112, end: 20241114
  3. DEXTROSE\FRUCTOSE\SODIUM CHLORIDE [Suspect]
     Active Substance: DEXTROSE\FRUCTOSE\SODIUM CHLORIDE
     Indication: Intracranial pressure increased
     Dosage: 250 ML, 2X/DAY
     Route: 041
     Dates: start: 20241108, end: 20241112
  4. DA KE PU LONG [Concomitant]
     Indication: Supportive care
     Dosage: 30 MG, 2X/DAY
     Dates: start: 20241110, end: 20241114
  5. TRILEPTAL [Concomitant]
     Active Substance: OXCARBAZEPINE
     Indication: Epilepsy
     Dosage: 0.6 G, 2X/DAY
     Dates: start: 20241104, end: 20241112
  6. AN GONG NIU HUANG [Concomitant]
     Indication: Supportive care
     Dosage: 3 G, 1X/DAY
     Dates: start: 20241102, end: 20241112

REACTIONS (10)
  - Skin plaque [Recovering/Resolving]
  - Papule [Recovering/Resolving]
  - Rash [Recovering/Resolving]
  - Drug eruption [Recovering/Resolving]
  - Rash erythematous [Recovering/Resolving]
  - Oedema [Recovering/Resolving]
  - Cyanosis [Recovering/Resolving]
  - Peripheral swelling [Recovering/Resolving]
  - Blister [Recovering/Resolving]
  - Rash macular [Recovering/Resolving]

NARRATIVE: CASE EVENT DATE: 20241111
